FAERS Safety Report 22265929 (Version 2)
Quarter: 2023Q2

REPORT INFORMATION
  Report Type: Spontaneous
  Country: US (occurrence: US)
  Receive Date: 20230428
  Receipt Date: 20230608
  Transmission Date: 20230722
  Serious: No
  Sender: FDA-Public Use
  Company Number: US-BIOVITRUM-2023US02687

PATIENT
  Age: 60 Year
  Sex: Male

DRUGS (2)
  1. KINERET [Suspect]
     Active Substance: ANAKINRA
     Indication: Pyrexia
     Dosage: EVERY DAY
     Route: 058
     Dates: start: 201904
  2. KINERET [Suspect]
     Active Substance: ANAKINRA
     Dosage: DAILY?100MG/0.67ML
     Route: 058
     Dates: start: 20190410

REACTIONS (18)
  - Serum ferritin increased [Unknown]
  - Pyrexia [Recovered/Resolved]
  - Condition aggravated [Recovered/Resolved]
  - Rash [Unknown]
  - Arthralgia [Unknown]
  - Blood cholesterol increased [Unknown]
  - Low density lipoprotein increased [Unknown]
  - Pain [Unknown]
  - Stomatitis [Unknown]
  - Alopecia [Unknown]
  - Fatigue [Unknown]
  - Injection site pain [Unknown]
  - Illness [Unknown]
  - Viral infection [Unknown]
  - Injection site haemorrhage [Unknown]
  - Pruritus [Unknown]
  - Joint injury [Unknown]
  - Syringe issue [Unknown]
